FAERS Safety Report 6056589-2 (Version None)
Quarter: 2009Q1

REPORT INFORMATION
  Report Type: 
  Country: None (occurrence: None)
  Receive Date: 20090126
  Receipt Date: 20090126
  Transmission Date: 20090719
  Serious: Yes (Hospitalization)
  Sender: FDA-Public Use
  Company Number: None

PATIENT
  Age: 97 Year
  Sex: Male

DRUGS (7)
  1. GMCSF [Suspect]
     Indication: PROSTATE CANCER
     Dosage: 250MG/M2 QD X 14DAYS AND OFF FOR 14 DAYS SQ
     Route: 058
     Dates: start: 20080728
  2. LUPRON [Concomitant]
  3. NEXIUM [Concomitant]
  4. M.V.I. [Concomitant]
  5. ALLOPURINOL [Concomitant]
  6. CALCIUM SUPPLEMENT [Concomitant]
  7. FLOWMAX [Concomitant]

REACTIONS (3)
  - PNEUMONIA [None]
  - URINARY TRACT INFECTION [None]
  - WHITE BLOOD CELL COUNT INCREASED [None]
